FAERS Safety Report 17559745 (Version 2)
Quarter: 2020Q2

REPORT INFORMATION
  Report Type: Spontaneous
  Country: GB (occurrence: GB)
  Receive Date: 20200319
  Receipt Date: 20200408
  Transmission Date: 20200713
  Serious: Yes (Hospitalization, Other)
  Sender: FDA-Public Use
  Company Number: GB-SUN PHARMACEUTICAL INDUSTRIES LTD-2020RR-240792

PATIENT
  Age: 73 Year
  Sex: Male

DRUGS (3)
  1. FLUCLOXACILLIN [Concomitant]
     Active Substance: FLUCLOXACILLIN
     Indication: WOUND INFECTION
     Dosage: UNK
     Route: 065
  2. FUSIDIC ACID [Suspect]
     Active Substance: FUSIDIC ACID
     Indication: INFECTION
     Dosage: UNK
     Route: 065
     Dates: start: 201806
  3. ATORVASTATIN [Suspect]
     Active Substance: ATORVASTATIN
     Indication: INFECTION
     Dosage: 80 MILLIGRAMS, UNKNOWN
     Route: 065
     Dates: start: 201806

REACTIONS (5)
  - Myalgia [Unknown]
  - Chromaturia [Unknown]
  - Blood creatine phosphokinase increased [Unknown]
  - Labelled drug-drug interaction medication error [Unknown]
  - Rhabdomyolysis [Unknown]

NARRATIVE: CASE EVENT DATE: 20180731
